FAERS Safety Report 19016150 (Version 1)
Quarter: 2021Q1

REPORT INFORMATION
  Report Type: Spontaneous
  Country: US (occurrence: US)
  Receive Date: 20210317
  Receipt Date: 20210317
  Transmission Date: 20210420
  Serious: No
  Sender: FDA-Public Use
  Company Number: US-GLOBAL BLOOD THERAPEUTICS INC-US-GBT-20-04245

PATIENT
  Sex: Male

DRUGS (4)
  1. OXBRYTA [Suspect]
     Active Substance: VOXELOTOR
     Dates: start: 2020, end: 2020
  2. OXBRYTA [Suspect]
     Active Substance: VOXELOTOR
     Indication: PRODUCT USED FOR UNKNOWN INDICATION
     Dates: start: 202005, end: 2020
  3. OXBRYTA [Suspect]
     Active Substance: VOXELOTOR
     Dates: start: 2020, end: 2020
  4. OXBRYTA [Suspect]
     Active Substance: VOXELOTOR
     Dates: start: 2020

REACTIONS (4)
  - Sickle cell anaemia with crisis [Unknown]
  - Thrombocytosis [Unknown]
  - Diarrhoea [Recovered/Resolved]
  - Abdominal pain [Recovered/Resolved]

NARRATIVE: CASE EVENT DATE: 2020
